FAERS Safety Report 10254725 (Version 1)
Quarter: 2014Q2

REPORT INFORMATION
  Report Type: Spontaneous
  Country: US (occurrence: US)
  Receive Date: 20140624
  Receipt Date: 20140624
  Transmission Date: 20141212
  Serious: Yes (Other)
  Sender: FDA-Public Use
  Company Number: US-SA-2014SA082946

PATIENT
  Age: 41 Year
  Sex: Male

DRUGS (2)
  1. FABRAZYME [Suspect]
     Indication: FABRY^S DISEASE
     Route: 042
     Dates: end: 201406
  2. DEMEROL [Concomitant]
     Indication: PREMEDICATION

REACTIONS (2)
  - Presyncope [Unknown]
  - Blood pressure decreased [Unknown]
